FAERS Safety Report 5899955-8 (Version None)
Quarter: 2008Q3

REPORT INFORMATION
  Report Type: 
  Country: None (occurrence: None)
  Receive Date: 20080925
  Receipt Date: 20080925
  Transmission Date: 20090109
  Serious: Yes (Life-Threatening)
  Sender: FDA-Public Use
  Company Number: None

PATIENT
  Sex: Male
  Weight: 79.3795 kg

DRUGS (2)
  1. DEMEROL [Suspect]
     Indication: COLONOSCOPY
     Dosage: 50MG ONCE IV
     Route: 042
     Dates: start: 20080916, end: 20080916
  2. VERSED [Suspect]
     Indication: COLONOSCOPY
     Dosage: 2MG, THEN 1MG, 3 DOSES IN @10MIN IV, 11:07AM TO 11:14AM
     Route: 042
     Dates: start: 20080916, end: 20080916

REACTIONS (5)
  - DISCOMFORT [None]
  - PROCEDURAL COMPLICATION [None]
  - RESPIRATORY ARREST [None]
  - STRIDOR [None]
  - TONGUE DISORDER [None]
